FAERS Safety Report 7686644-2 (Version None)
Quarter: 2011Q3

REPORT INFORMATION
  Report Type: 
  Country: None (occurrence: None)
  Receive Date: 20110816
  Receipt Date: 20110816
  Transmission Date: 20111222
  Serious: Yes (Other)
  Sender: FDA-Public Use
  Company Number: None

PATIENT
  Age: 39 Year
  Sex: Female
  Weight: 44.452 kg

DRUGS (1)
  1. COLCRYS [Suspect]
     Indication: FAMILIAL MEDITERRANEAN FEVER
     Dosage: 0.6MG
     Route: 048
     Dates: start: 20110801, end: 20110810

REACTIONS (1)
  - DRUG INEFFECTIVE [None]
